FAERS Safety Report 12480327 (Version 1)
Quarter: 2016Q2

REPORT INFORMATION
  Report Type: Spontaneous
  Country: CH (occurrence: CH)
  Receive Date: 20160620
  Receipt Date: 20160620
  Transmission Date: 20160815
  Serious: Yes (Hospitalization, Other)
  Sender: FDA-Public Use
  Company Number: CH-ELI_LILLY_AND_COMPANY-CH201606004281

PATIENT
  Age: 75 Year
  Sex: Male

DRUGS (13)
  1. MOTILIUM [Suspect]
     Active Substance: DOMPERIDONE
     Indication: PROPHYLAXIS OF NAUSEA AND VOMITING
     Dosage: 1 DF, PRN
     Route: 048
     Dates: start: 20150903, end: 20150909
  2. ALIMTA [Suspect]
     Active Substance: PEMETREXED DISODIUM
     Indication: LUNG CARCINOMA CELL TYPE UNSPECIFIED STAGE III
     Dosage: 911 MG, CYCLICAL
     Route: 042
     Dates: start: 20150903, end: 20150903
  3. AUGMENTIN [Suspect]
     Active Substance: AMOXICILLIN\CLAVULANATE POTASSIUM
     Indication: PRODUCT USED FOR UNKNOWN INDICATION
     Dosage: UNK, UNKNOWN
     Route: 042
     Dates: start: 20150907
  4. CARBOPLATIN. [Concomitant]
     Active Substance: CARBOPLATIN
     Indication: LUNG CARCINOMA CELL TYPE UNSPECIFIED STAGE III
     Dosage: 479 MG, CYCLICAL
     Route: 042
     Dates: start: 20150903, end: 20150903
  5. TARGIN [Suspect]
     Active Substance: NALOXONE HYDROCHLORIDE\OXYCODONE HYDROCHLORIDE
     Indication: PAIN
     Dosage: 15 MG, BID
     Route: 048
     Dates: start: 20150903, end: 20150907
  6. ONDANSETRON [Suspect]
     Active Substance: ONDANSETRON
     Indication: PRODUCT USED FOR UNKNOWN INDICATION
     Dosage: 1 DF, UNKNOWN
     Route: 040
     Dates: start: 20150903, end: 20150903
  7. TARGIN [Suspect]
     Active Substance: NALOXONE HYDROCHLORIDE\OXYCODONE HYDROCHLORIDE
     Dosage: 15 MG, BID
     Route: 048
     Dates: start: 20150916
  8. NOVALGIN [Concomitant]
     Active Substance: METAMIZOLE SODIUM
     Indication: PRODUCT USED FOR UNKNOWN INDICATION
     Dosage: 30 DF, PRN
     Route: 065
  9. MOVICOL                            /08437601/ [Concomitant]
     Indication: PRODUCT USED FOR UNKNOWN INDICATION
     Dosage: UNK, PRN
     Route: 065
  10. ALIMTA [Suspect]
     Active Substance: PEMETREXED DISODIUM
     Dosage: 911 MG, CYCLICAL
     Route: 042
     Dates: start: 20150925
  11. CARBOPLATIN. [Concomitant]
     Active Substance: CARBOPLATIN
     Dosage: 497 MG, CYCLICAL
     Route: 042
     Dates: start: 20150925
  12. TARGIN [Suspect]
     Active Substance: NALOXONE HYDROCHLORIDE\OXYCODONE HYDROCHLORIDE
     Dosage: 10 MG, BID
     Route: 048
     Dates: start: 20150908, end: 20150915
  13. MOTILIUM [Suspect]
     Active Substance: DOMPERIDONE
     Dosage: 30 MG, PRN
     Route: 048
     Dates: start: 20150907, end: 20150909

REACTIONS (19)
  - Arteriosclerosis coronary artery [Unknown]
  - Ventricular tachycardia [Recovered/Resolved]
  - Regurgitation [Unknown]
  - Drug hypersensitivity [Unknown]
  - Decreased appetite [Unknown]
  - Off label use [Unknown]
  - Syncope [Recovered/Resolved]
  - Hypokalaemia [Unknown]
  - Back pain [Unknown]
  - Atrial fibrillation [Unknown]
  - Electrocardiogram QT prolonged [Recovered/Resolved]
  - Dysgeusia [Unknown]
  - Rash [Unknown]
  - Left ventricular dysfunction [Unknown]
  - Benign prostatic hyperplasia [Unknown]
  - Meningioma [Unknown]
  - Syncope [Recovered/Resolved]
  - Nausea [Unknown]
  - Constipation [Unknown]

NARRATIVE: CASE EVENT DATE: 20150903
